FAERS Safety Report 24655896 (Version 4)
Quarter: 2025Q4

REPORT INFORMATION
  Report Type: Spontaneous
  Country: US (occurrence: US)
  Receive Date: 20241124
  Receipt Date: 20251109
  Transmission Date: 20260118
  Serious: Yes (Other)
  Sender: SANOFI AVENTIS
  Company Number: US-SA-2024SA294778

PATIENT
  Age: 50 Year
  Sex: Female

DRUGS (1)
  1. DUPIXENT [Suspect]
     Active Substance: DUPILUMAB
     Indication: Neurodermatitis
     Dosage: 300 MG, QOW
     Route: 058
     Dates: start: 202409

REACTIONS (7)
  - Mastectomy [Unknown]
  - Upper respiratory tract congestion [Unknown]
  - Scar [Unknown]
  - Skin mass [Not Recovered/Not Resolved]
  - Vomiting [Unknown]
  - Rotator cuff syndrome [Unknown]
  - Headache [Unknown]

NARRATIVE: CASE EVENT DATE: 20240101
